FAERS Safety Report 13929956 (Version 2)
Quarter: 2017Q3

REPORT INFORMATION
  Report Type: Spontaneous
  Country: US (occurrence: US)
  Receive Date: 20170901
  Receipt Date: 20170905
  Transmission Date: 20171127
  Serious: Yes (Death, Hospitalization, Other)
  Sender: FDA-Public Use
  Company Number: US-PFM-2017-07102

PATIENT

DRUGS (2)
  1. PROPRANOLOL HYDROCHLORIDE. [Suspect]
     Active Substance: PROPRANOLOL HYDROCHLORIDE
     Indication: BASEDOW^S DISEASE
     Dosage: UNK UNK, UNKNOWN
     Route: 065
  2. PROPRANOLOL HYDROCHLORIDE. [Suspect]
     Active Substance: PROPRANOLOL HYDROCHLORIDE
     Dosage: UNK
     Route: 042

REACTIONS (18)
  - Poor peripheral circulation [Unknown]
  - Dyspnoea [Unknown]
  - Palpitations [Unknown]
  - Drug administered to patient of inappropriate age [Unknown]
  - Cardiomyopathy [Fatal]
  - Off label use [Unknown]
  - Weight decreased [Not Recovered/Not Resolved]
  - Fatigue [Unknown]
  - Haemoptysis [Unknown]
  - Thyrotoxic crisis [Fatal]
  - Disseminated intravascular coagulation [Fatal]
  - Thrombocytopenia [Unknown]
  - Multiple organ dysfunction syndrome [Fatal]
  - Diarrhoea [Unknown]
  - Gastrointestinal haemorrhage [Unknown]
  - Neurological decompensation [Unknown]
  - Oedema peripheral [Unknown]
  - Product use in unapproved indication [Unknown]
